FAERS Safety Report 7787618-3 (Version None)
Quarter: 2011Q3

REPORT INFORMATION
  Report Type: 
  Country: None (occurrence: None)
  Receive Date: 20110929
  Receipt Date: 20110920
  Transmission Date: 20111222
  Serious: Yes (Hospitalization, Other)
  Sender: FDA-Public Use
  Company Number: US-BAYER-2011-050344

PATIENT
  Age: 40 Year
  Sex: Female
  Weight: 95.238 kg

DRUGS (13)
  1. YASMIN [Suspect]
     Indication: ACNE
     Dosage: UNK
     Dates: start: 20030101, end: 20050101
  2. ALBUTEROL [Concomitant]
     Indication: ASTHMA
     Dosage: 90 MCG/24HR, UNK
     Route: 045
  3. TYLENOL-500 [Concomitant]
     Indication: ARTHRALGIA
     Dosage: 1 TABLET, 3 TIMES DAILY
     Route: 048
  4. AMOXICILLIN [Concomitant]
     Indication: OTITIS MEDIA
     Dosage: 500 MG, UNK
     Route: 048
     Dates: start: 20041104
  5. FERROUS SULFATE TAB [Concomitant]
     Indication: IRON DEFICIENCY ANAEMIA
     Dosage: 325 MG, UNK
     Route: 048
  6. ACETAMINOPHEN W/ CODEINE [Concomitant]
     Dosage: UNK
     Route: 048
     Dates: start: 20041130
  7. IBUPROFEN [Concomitant]
     Indication: ARTHRALGIA
     Dosage: 600 MG, UNK
     Route: 048
  8. ALLEGRA [Concomitant]
     Indication: SEASONAL ALLERGY
     Dosage: 60 MG, BID
     Route: 048
  9. MYLANTA [CALCIUM CARBONATE] [Concomitant]
  10. ADVAIR DISKUS 100/50 [Concomitant]
     Indication: ASTHMA
     Dosage: 100-50 DISKUS
     Route: 045
  11. YASMIN [Suspect]
     Indication: MENORRHAGIA
  12. IBUPROFEN [Concomitant]
     Indication: ARTHRITIS
  13. PREVACID [Concomitant]
     Indication: GASTROOESOPHAGEAL REFLUX DISEASE
     Dosage: 30 MG, UNK
     Route: 048

REACTIONS (4)
  - CHOLECYSTITIS CHRONIC [None]
  - INJURY [None]
  - PAIN [None]
  - GALLBLADDER DISORDER [None]
